FAERS Safety Report 9852415 (Version 1)
Quarter: 2013Q4

REPORT INFORMATION
  Report Type: Spontaneous
  Country: US (occurrence: None)
  Receive Date: 20131226
  Receipt Date: 20131226
  Transmission Date: 20140711
  Serious: Yes (Death)
  Sender: FDA-Public Use
  Company Number: PHEH2013US017576

PATIENT
  Age: 72 Year
  Sex: Female

DRUGS (2)
  1. AFINITOR (RAD) TABLET, 10MG [Suspect]
     Indication: BREAST CANCER
     Route: 048
     Dates: start: 20130501
  2. EXEMESTANE (EXEMESTANE) [Concomitant]

REACTIONS (2)
  - Pneumonia [None]
  - Dyspnoea [None]
